FAERS Safety Report 4300535-6 (Version None)
Quarter: 2004Q1

REPORT INFORMATION
  Report Type: 
  Country: None (occurrence: None)
  Receive Date: 20040218
  Receipt Date: 20040205
  Transmission Date: 20041129
  Serious: Yes (Hospitalization, Other)
  Sender: FDA-Public Use
  Company Number: 2004007974

PATIENT
  Age: 68 Year
  Sex: Female

DRUGS (3)
  1. VFEND [Suspect]
     Indication: ILL-DEFINED DISORDER
     Dosage: 450 MG (DAILY), INTRAVENOUS
     Route: 042
     Dates: start: 20040101, end: 20040101
  2. GLIPIZIDE [Suspect]
     Indication: ILL-DEFINED DISORDER
     Dosage: 5 MG (DAILY), ORAL
     Route: 048
  3. ALL OTHER THERAPEUTIC PRODUCTS [Concomitant]

REACTIONS (3)
  - COMA [None]
  - DRUG INTERACTION [None]
  - HYPOGLYCAEMIA [None]
